FAERS Safety Report 15104006 (Version 1)
Quarter: 2018Q3

REPORT INFORMATION
  Report Type: Spontaneous
  Country: IT (occurrence: IT)
  Receive Date: 20180703
  Receipt Date: 20180703
  Transmission Date: 20181010
  Serious: Yes (Other)
  Sender: FDA-Public Use
  Company Number: IT-TEVA-2018-IT-918549

PATIENT
  Age: 71 Year
  Sex: Female

DRUGS (6)
  1. ENTACT [Concomitant]
     Active Substance: ESCITALOPRAM OXALATE
     Route: 065
  2. COUMADIN [Concomitant]
     Active Substance: WARFARIN SODIUM
  3. TAPAZOLE [Concomitant]
     Active Substance: METHIMAZOLE
  4. KARVEA [Concomitant]
     Active Substance: IRBESARTAN
     Route: 065
  5. BRETARIS GENUAIR [Concomitant]
     Active Substance: ACLIDINIUM BROMIDE
     Route: 065
  6. BISOPROLOL FUMARATE. [Suspect]
     Active Substance: BISOPROLOL FUMARATE
     Indication: CARDIAC FAILURE
     Dosage: 1.25 MILLIGRAM DAILY;
     Route: 048
     Dates: start: 20170101, end: 20180114

REACTIONS (2)
  - Sinus bradycardia [Recovering/Resolving]
  - Loss of consciousness [Recovering/Resolving]

NARRATIVE: CASE EVENT DATE: 20180114
